FAERS Safety Report 13094516 (Version 9)
Quarter: 2017Q4

REPORT INFORMATION
  Report Type: Report from Study
  Country: None (occurrence: CA)
  Receive Date: 20170106
  Receipt Date: 20171010
  Transmission Date: 20180320
  Serious: Yes (Hospitalization, Other)
  Sender: FDA-Public Use
  Company Number: CA-ABBVIE-17P-028-1829457-00

PATIENT
  Age: 57 Year
  Sex: Male
  Weight: 92 kg

DRUGS (1)
  1. HOLKIRA PAK [Suspect]
     Active Substance: DASABUVIR\OMBITASVIR\PARITAPREVIR\RITONAVIR
     Indication: CHRONIC HEPATITIS C
     Dosage: 2 OMBITASVIR/PARITAPREVIR/RITONAVIR 12.5/75/50MG TABS QD, 1 DASABUVIR 250MG TAB BID
     Route: 048
     Dates: start: 20161004, end: 20161220

REACTIONS (6)
  - Bowel movement irregularity [Unknown]
  - Tremor [Recovered/Resolved]
  - Constipation [Recovered/Resolved]
  - Hepatic encephalopathy [Recovered/Resolved]
  - Bowel movement irregularity [Unknown]
  - Delirium [Recovered/Resolved]

NARRATIVE: CASE EVENT DATE: 20161206
